FAERS Safety Report 13950499 (Version 1)
Quarter: 2017Q3

REPORT INFORMATION
  Report Type: Spontaneous
  Country: US (occurrence: US)
  Receive Date: 20170908
  Receipt Date: 20170908
  Transmission Date: 20171128
  Serious: Yes (Other)
  Sender: FDA-Public Use
  Company Number: US-ROCHE-1131256

PATIENT
  Sex: Male

DRUGS (14)
  1. CIPROFLOXACIN. [Concomitant]
     Active Substance: CIPROFLOXACIN
     Route: 065
  2. RITUXAN [Suspect]
     Active Substance: RITUXIMAB
     Dosage: 400 MG/HR
     Route: 065
  3. RITUXAN [Suspect]
     Active Substance: RITUXIMAB
     Dosage: 300 MG/HR
     Route: 065
  4. VELBAN [Concomitant]
     Active Substance: VINBLASTINE SULFATE
     Route: 065
  5. PREVACID [Concomitant]
     Active Substance: LANSOPRAZOLE
     Route: 065
  6. BETADINE [Concomitant]
     Active Substance: POVIDONE-IODINE
  7. NEUPOGEN [Concomitant]
     Active Substance: FILGRASTIM
     Route: 065
  8. ETOPOSIDE. [Concomitant]
     Active Substance: ETOPOSIDE
  9. TYLENOL [Concomitant]
     Active Substance: ACETAMINOPHEN
     Route: 048
  10. CISPLATINUM [Concomitant]
     Active Substance: CISPLATIN
  11. LASIX [Concomitant]
     Active Substance: FUROSEMIDE
  12. RITUXAN [Suspect]
     Active Substance: RITUXIMAB
     Indication: LYMPHOMA
     Dosage: 100 MG/HR (500 CC)
     Route: 065
  13. RITUXAN [Suspect]
     Active Substance: RITUXIMAB
     Dosage: 200 MG/HR
     Route: 065
  14. NEUPOGEN [Concomitant]
     Active Substance: FILGRASTIM
     Route: 058

REACTIONS (13)
  - Erythema [Unknown]
  - Nasopharyngitis [Unknown]
  - Radiation mucositis [Unknown]
  - Neutropenia [Unknown]
  - Pigmentation disorder [Unknown]
  - Oropharyngeal pain [Unknown]
  - Lymphadenopathy [Recovered/Resolved]
  - Discomfort [Unknown]
  - Asthenia [Unknown]
  - Anaemia [Unknown]
  - Abdominal pain [Unknown]
  - Tenderness [Unknown]
  - Bronchitis [Unknown]
